FAERS Safety Report 5075153-5 (Version None)
Quarter: 2006Q3

REPORT INFORMATION
  Report Type: 
  Country: None (occurrence: None)
  Receive Date: 20060714
  Receipt Date: 20060510
  Transmission Date: 20061208
  Serious: No
  Sender: FDA-Public Use
  Company Number: 2006SP002012

PATIENT
  Age: 69 Year
  Sex: Male
  Weight: 71.6683 kg

DRUGS (4)
  1. LUNESTA [Suspect]
     Indication: INSOMNIA
     Dosage: 3 MG;HS;ORAL
     Route: 048
     Dates: start: 20060201
  2. FOLIC ACID [Concomitant]
  3. VITAMINS [Concomitant]
  4. METHOTREXATE [Concomitant]

REACTIONS (2)
  - CARPAL TUNNEL DECOMPRESSION [None]
  - DRUG EFFECT DECREASED [None]
